FAERS Safety Report 8028933 (Version 7)
Quarter: 2012Q4

REPORT INFORMATION
  Report Type: 
  Country: US (occurrence: US)
  Receive Date: 20110711
  Receipt Date: 20121029
  Transmission Date: 20130627
  Serious: Yes (Congenital Anomaly)
  Sender: FDA-Public Use
  Company Number: US-GLAXOSMITHKLINE-A0935510A

PATIENT
  Age: 0 Year
  Sex: Male

DRUGS (6)
  1. PAXIL CR [Suspect]
     Indication: ANXIETY
     Dosage: 37.5MG Per day
     Route: 064
     Dates: start: 20070227, end: 200710
  2. VISTARIL [Concomitant]
     Indication: ANXIETY
     Dates: start: 200702
  3. ZOLOFT [Concomitant]
     Route: 064
     Dates: start: 2007
  4. VISTARIL [Concomitant]
  5. SERTRALINE [Concomitant]
     Dates: start: 200710
  6. PRENATAL VITAMINS [Concomitant]

REACTIONS (9)
  - Dextrocardia [Not Recovered/Not Resolved]
  - Renal dysplasia [Unknown]
  - Pulmonary aplasia [Unknown]
  - Congenital pulmonary hypertension [Unknown]
  - Pulmonary hypoplasia [Unknown]
  - Congenital pulmonary artery anomaly [Unknown]
  - Congenital musculoskeletal anomaly [Unknown]
  - VACTERL syndrome [Unknown]
  - Foetal exposure during pregnancy [Unknown]
